FAERS Safety Report 4500314-0 (Version None)
Quarter: 2004Q4

REPORT INFORMATION
  Report Type: 
  Country: None (occurrence: None)
  Receive Date: 20041112
  Receipt Date: 20041006
  Transmission Date: 20050328
  Serious: Yes (Disabling)
  Sender: FDA-Public Use
  Company Number: US-MERCK-0410USA00951

PATIENT
  Age: 54 Year
  Sex: Female
  Weight: 140 kg

DRUGS (1)
  1. VIOXX [Suspect]
     Indication: ARTHRITIS
     Route: 048

REACTIONS (3)
  - ANGINA PECTORIS [None]
  - HYPOAESTHESIA [None]
  - PAIN IN EXTREMITY [None]
